FAERS Safety Report 11957910 (Version 1)
Quarter: 2016Q1

REPORT INFORMATION
  Report Type: Spontaneous
  Country: US (occurrence: US)
  Receive Date: 20160126
  Receipt Date: 20160126
  Transmission Date: 20160526
  Serious: Yes (Hospitalization, Other)
  Sender: FDA-Public Use
  Company Number: US-HQ SPECIALTY-US-2016INT000024

PATIENT
  Sex: Female

DRUGS (6)
  1. PAZOPANIB [Suspect]
     Active Substance: PAZOPANIB
     Indication: METASTATIC MALIGNANT MELANOMA
     Dosage: 800 MG, DAILY
  2. PAZOPANIB [Suspect]
     Active Substance: PAZOPANIB
     Indication: METASTASES TO LUNG
  3. PACLITAXEL. [Suspect]
     Active Substance: PACLITAXEL
     Indication: METASTATIC MALIGNANT MELANOMA
     Dosage: 175 MG/M2, EVERY 21 DAYS
  4. CARBOPLATIN. [Suspect]
     Active Substance: CARBOPLATIN
     Indication: METASTATIC MALIGNANT MELANOMA
     Dosage: 6 AUC, EVERY 21 DAYS
  5. CARBOPLATIN. [Suspect]
     Active Substance: CARBOPLATIN
     Indication: METASTASES TO LUNG
     Dosage: UNK, 50% DOSE REDUCTION
  6. PACLITAXEL. [Suspect]
     Active Substance: PACLITAXEL
     Indication: METASTASES TO LUNG
     Dosage: UNK, 50% DOSE REDUCTION

REACTIONS (16)
  - Gait disturbance [Unknown]
  - Nausea [Recovered/Resolved]
  - Hypertensive crisis [Unknown]
  - Decreased appetite [Unknown]
  - Dysuria [Recovered/Resolved]
  - Diarrhoea [Recovered/Resolved]
  - Asthenia [Unknown]
  - Posterior reversible encephalopathy syndrome [Unknown]
  - Renal failure [Recovered/Resolved]
  - Febrile neutropenia [Recovered/Resolved]
  - Vision blurred [Unknown]
  - Muscular weakness [Unknown]
  - Seizure [Unknown]
  - Confusional state [Unknown]
  - Vomiting [Recovered/Resolved]
  - Headache [Unknown]
